FAERS Safety Report 22998574 (Version 2)
Quarter: 2023Q4

REPORT INFORMATION
  Report Type: Spontaneous
  Country: US (occurrence: US)
  Receive Date: 20230928
  Receipt Date: 20231030
  Transmission Date: 20240110
  Serious: Yes (Other)
  Sender: FDA-Public Use
  Company Number: US-BRISTOL-MYERS SQUIBB COMPANY-2023-137236

PATIENT
  Age: 78 Year
  Sex: Male

DRUGS (1)
  1. REVLIMID [Suspect]
     Active Substance: LENALIDOMIDE
     Indication: Plasma cell myeloma
     Dosage: FREQ: 1 QD FOR 21 DAYS THEN 7 DAY
     Route: 048

REACTIONS (3)
  - Pain [Unknown]
  - Gait disturbance [Unknown]
  - Thrombosis [Unknown]

NARRATIVE: CASE EVENT DATE: 20231017
